FAERS Safety Report 4325222-X (Version None)
Quarter: 2004Q1

REPORT INFORMATION
  Report Type: 
  Country: None (occurrence: None)
  Receive Date: 20040323
  Receipt Date: 20040205
  Transmission Date: 20041129
  Serious: No
  Sender: FDA-Public Use
  Company Number: USA040258670

PATIENT
  Age: 66 Year
  Sex: Male

DRUGS (7)
  1. CIALIS [Suspect]
     Indication: ERECTILE DYSFUNCTION
     Dosage: 20 MG
     Dates: start: 20031211
  2. SINEMET [Concomitant]
  3. MIRAPEX (MIRAPEX) [Concomitant]
  4. AMANTADINE HCL [Concomitant]
  5. GLYBURIDE [Concomitant]
  6. METFORMIN HCL [Concomitant]
  7. MEVACOR [Concomitant]

REACTIONS (1)
  - DRUG INEFFECTIVE [None]
